FAERS Safety Report 20149360 (Version 2)
Quarter: 2021Q4

REPORT INFORMATION
  Report Type: Report from Study
  Country: CA (occurrence: CA)
  Receive Date: 20211205
  Receipt Date: 20211220
  Transmission Date: 20220303
  Serious: Yes (Other)
  Sender: FDA-Public Use
  Company Number: CA-JNJFOC-20211032463

PATIENT
  Age: 62 Year
  Sex: Male

DRUGS (11)
  1. MACITENTAN [Suspect]
     Active Substance: MACITENTAN
     Indication: Pulmonary arterial hypertension
     Route: 048
     Dates: start: 20210417
  2. SELEXIPAG [Suspect]
     Active Substance: SELEXIPAG
     Indication: Pulmonary arterial hypertension
     Route: 048
     Dates: start: 20211117, end: 20211119
  3. ADCIRCA [Concomitant]
     Active Substance: TADALAFIL
  4. INSULIN NOS [Concomitant]
     Active Substance: INSULIN NOS
  5. PANTOPRAZOLE [Concomitant]
     Active Substance: PANTOPRAZOLE
  6. ESCITALOPRAM [Concomitant]
     Active Substance: ESCITALOPRAM OXALATE
  7. METHOTREXATE [Concomitant]
     Active Substance: METHOTREXATE
  8. FUROSEMIDE [Concomitant]
     Active Substance: FUROSEMIDE
  9. ALBUTEROL [Concomitant]
     Active Substance: ALBUTEROL
  10. ROSUVASTATIN [Concomitant]
     Active Substance: ROSUVASTATIN
  11. HYDROCHLOROTHIAZIDE [Concomitant]
     Active Substance: HYDROCHLOROTHIAZIDE

REACTIONS (3)
  - Dyspnoea [Recovered/Resolved]
  - Musculoskeletal discomfort [Recovered/Resolved]
  - Headache [Recovering/Resolving]

NARRATIVE: CASE EVENT DATE: 20210101
